FAERS Safety Report 4629653-X (Version None)
Quarter: 2005Q2

REPORT INFORMATION
  Report Type: 
  Country: None (occurrence: None)
  Receive Date: 20050406
  Receipt Date: 20050317
  Transmission Date: 20051028
  Serious: Yes (Hospitalization, Other)
  Sender: FDA-Public Use
  Company Number: EWC050142396

PATIENT
  Age: 75 Year
  Sex: Female

DRUGS (1)
  1. FORTEO [Suspect]
     Indication: OSTEOPOROSIS
     Dosage: 20 UG1/DAY
     Dates: start: 20041101, end: 20041224

REACTIONS (3)
  - ANAL POLYP [None]
  - HAEMORRHOIDAL HAEMORRHAGE [None]
  - RECTAL CANCER [None]
